FAERS Safety Report 8279272-1 (Version None)
Quarter: 2012Q2

REPORT INFORMATION
  Report Type: 
  Country: None (occurrence: None)
  Receive Date: 20120412
  Receipt Date: 20120411
  Transmission Date: 20120825
  Serious: No
  Sender: FDA-Public Use
  Company Number: US-B.I. PHARMACEUTICALS,INC./RIDGEFIELD-2012-BP-06823BP

PATIENT
  Sex: Male

DRUGS (1)
  1. PRADAXA [Suspect]
     Indication: ATRIAL FIBRILLATION
     Dosage: 300 MG
     Route: 048
     Dates: start: 20110901

REACTIONS (6)
  - COLITIS [None]
  - ORTHOSTATIC HYPOTENSION [None]
  - DIZZINESS [None]
  - ABDOMINAL PAIN UPPER [None]
  - OESOPHAGEAL PAIN [None]
  - GASTROINTESTINAL HYPOMOTILITY [None]
